FAERS Safety Report 6800846-6 (Version None)
Quarter: 2010Q2

REPORT INFORMATION
  Report Type: 
  Country: None (occurrence: None)
  Receive Date: 20100629
  Receipt Date: 20100616
  Transmission Date: 20101027
  Serious: Yes (Hospitalization, Other)
  Sender: FDA-Public Use
  Company Number: US-PFIZER INC-2010077067

PATIENT
  Age: 48 Year
  Sex: Male

DRUGS (4)
  1. ATENOLOL [Suspect]
     Indication: HYPERTENSION
     Dosage: 50 MG, UNK
     Route: 048
  2. METHYLPREDNISOLONE SODIUM SUCCINATE [Suspect]
     Dosage: 30 MG/KG, UNK
  3. METHYLPREDNISOLONE SODIUM SUCCINATE [Suspect]
     Dosage: 5.4 MG/KG/H
     Route: 041
  4. IBUPROFENE [Concomitant]

REACTIONS (4)
  - GASTROINTESTINAL HAEMORRHAGE [None]
  - HYPOTENSION [None]
  - PNEUMONIA [None]
  - SPINAL SHOCK [None]
